FAERS Safety Report 16957620 (Version 4)
Quarter: 2020Q2

REPORT INFORMATION
  Report Type: Spontaneous
  Country: DE (occurrence: DE)
  Receive Date: 20191024
  Receipt Date: 20200514
  Transmission Date: 20200713
  Serious: Yes (Other)
  Sender: FDA-Public Use
  Company Number: DE-ELI_LILLY_AND_COMPANY-DE201910005739

PATIENT
  Age: 47 Year
  Sex: Female

DRUGS (6)
  1. ZYPREXA [Suspect]
     Active Substance: OLANZAPINE
     Indication: BRIEF PSYCHOTIC DISORDER, WITH POSTPARTUM ONSET
     Dosage: 2.5 MG, UNKNOWN
     Route: 065
     Dates: start: 1999
  2. ZYPREXA [Suspect]
     Active Substance: OLANZAPINE
     Indication: HALLUCINATION
  3. CITALOPRAM [Concomitant]
     Active Substance: CITALOPRAM HYDROBROMIDE
     Dosage: 5 MG, UNKNOWN
  4. ZYPREXA [Suspect]
     Active Substance: OLANZAPINE
     Indication: PERINATAL DEPRESSION
     Dosage: UNK UNK, UNKNOWN
     Route: 065
     Dates: start: 1999
  5. CITALOPRAM [Concomitant]
     Active Substance: CITALOPRAM HYDROBROMIDE
     Indication: PRODUCT USED FOR UNKNOWN INDICATION
     Dosage: 20 MG, UNKNOWN
  6. LORAZEPAM. [Concomitant]
     Active Substance: LORAZEPAM
     Indication: PRODUCT USED FOR UNKNOWN INDICATION
     Dosage: 0.5 MG

REACTIONS (12)
  - Weight increased [Not Recovered/Not Resolved]
  - Infertility [Unknown]
  - Feeling abnormal [Unknown]
  - Depression [Not Recovered/Not Resolved]
  - Drug dependence [Unknown]
  - Cardiovascular disorder [Not Recovered/Not Resolved]
  - Polycystic ovaries [Not Recovered/Not Resolved]
  - Drug withdrawal syndrome [Unknown]
  - Apathy [Not Recovered/Not Resolved]
  - Hypertrichosis [Not Recovered/Not Resolved]
  - Asocial behaviour [Unknown]
  - Diabetes mellitus [Not Recovered/Not Resolved]
